FAERS Safety Report 24234342 (Version 1)
Quarter: 2024Q3

REPORT INFORMATION
  Report Type: Spontaneous
  Country: US (occurrence: None)
  Receive Date: 20240820
  Receipt Date: 20240820
  Transmission Date: 20241017
  Serious: Yes (unspecified)
  Sender: Public
  Company Number: None

PATIENT
  Age: 50 Year
  Sex: Female
  Weight: 99 kg

DRUGS (5)
  1. VOQUEZNA [Suspect]
     Active Substance: VONOPRAZAN FUMARATE
     Indication: Erosive oesophagitis
     Dosage: OTHER QUANTITY : 1 TABLET(S);?FREQUENCY : DAILY;?
     Route: 048
     Dates: start: 20240401, end: 20240814
  2. EPIPEN [Concomitant]
     Active Substance: EPINEPHRINE
  3. ADDERALL [Concomitant]
     Active Substance: AMPHETAMINE ASPARTATE\AMPHETAMINE SULFATE\DEXTROAMPHETAMINE SACCHARATE\DEXTROAMPHETAMINE SULFATE
  4. VITAMINS [Concomitant]
     Active Substance: VITAMINS
  5. UNSPECIFIED INGREDIENT [Concomitant]
     Active Substance: UNSPECIFIED INGREDIENT

REACTIONS (13)
  - Blood pressure increased [None]
  - Body temperature decreased [None]
  - Peripheral swelling [None]
  - Varicose vein [None]
  - Back pain [None]
  - Headache [None]
  - Chills [None]
  - Swelling [None]
  - Erythema [None]
  - Fatigue [None]
  - Dyspnoea [None]
  - Renal injury [None]
  - Liver injury [None]

NARRATIVE: CASE EVENT DATE: 20240814
